FAERS Safety Report 23905559 (Version 2)
Quarter: 2024Q2

REPORT INFORMATION
  Report Type: Report from Study
  Country: IT (occurrence: IT)
  Receive Date: 20240527
  Receipt Date: 20240529
  Transmission Date: 20240716
  Serious: Yes (Death, Other)
  Sender: FDA-Public Use
  Company Number: IT-JNJFOC-20240519363

PATIENT
  Age: 71 Year

DRUGS (3)
  1. VENETOCLAX [Suspect]
     Active Substance: VENETOCLAX
     Indication: Lymphocytic leukaemia
     Route: 048
  2. DARZALEX [Suspect]
     Active Substance: DARATUMUMAB
     Indication: Lymphocytic leukaemia
     Route: 065
     Dates: start: 20240111, end: 20240201
  3. NELARABINE [Suspect]
     Active Substance: NELARABINE
     Indication: Lymphocytic leukaemia
     Route: 065

REACTIONS (3)
  - T-cell type acute leukaemia [Fatal]
  - Drug ineffective [Unknown]
  - Off label use [Unknown]
